FAERS Safety Report 5897009-8 (Version None)
Quarter: 2008Q3

REPORT INFORMATION
  Report Type: 
  Country: None (occurrence: None)
  Receive Date: 20080924
  Receipt Date: 20080318
  Transmission Date: 20090109
  Serious: Yes (Hospitalization, Other)
  Sender: FDA-Public Use
  Company Number: US-ASTRAZENECA-2008UW01599

PATIENT
  Age: 12641 Day
  Sex: Male

DRUGS (3)
  1. SEROQUEL [Suspect]
     Indication: BIPOLAR II DISORDER
     Route: 048
  2. SEROQUEL [Suspect]
     Indication: PARANOIA
     Route: 048
  3. LEXAPRO [Suspect]
     Indication: DEPRESSION
     Route: 048

REACTIONS (1)
  - PRIAPISM [None]
